FAERS Safety Report 6952136-9 (Version None)
Quarter: 2010Q3

REPORT INFORMATION
  Report Type: 
  Country: None (occurrence: None)
  Receive Date: 20100829
  Receipt Date: 20100426
  Transmission Date: 20110219
  Serious: No
  Sender: FDA-Public Use
  Company Number: US-ABBOTT-10P-163-0641506-00

PATIENT
  Sex: Female

DRUGS (5)
  1. NIASPAN [Suspect]
     Indication: BLOOD CHOLESTEROL INCREASED
     Route: 048
     Dates: start: 20100301, end: 20100301
  2. NIASPAN [Suspect]
     Route: 048
     Dates: start: 20080101, end: 20080101
  3. NIASPAN [Suspect]
     Route: 048
     Dates: start: 20080101, end: 20100201
  4. NIASPAN [Suspect]
     Route: 048
     Dates: start: 20080101, end: 20080101
  5. VITAMINS [Concomitant]
     Indication: PRODUCT USED FOR UNKNOWN INDICATION
     Route: 048

REACTIONS (3)
  - HEART RATE INCREASED [None]
  - HEART RATE IRREGULAR [None]
  - INCORRECT DRUG ADMINISTRATION DURATION [None]
